FAERS Safety Report 19403633 (Version 2)
Quarter: 2021Q3

REPORT INFORMATION
  Report Type: Spontaneous
  Country: US (occurrence: US)
  Receive Date: 20210610
  Receipt Date: 20210706
  Transmission Date: 20211014
  Serious: No
  Sender: FDA-Public Use
  Company Number: US-AMGEN-USASP2021085886

PATIENT
  Age: 63 Year
  Sex: Male

DRUGS (3)
  1. OTEZLA [Suspect]
     Active Substance: APREMILAST
     Indication: PSORIASIS
     Dosage: 30 MILLIGRAM, BID
     Route: 048
  2. OTEZLA [Suspect]
     Active Substance: APREMILAST
     Indication: DISEASE COMPLICATION
  3. OTEZLA [Suspect]
     Active Substance: APREMILAST
     Indication: OFF LABEL USE

REACTIONS (4)
  - Affective disorder [Unknown]
  - Psoriasis [Not Recovered/Not Resolved]
  - Headache [Not Recovered/Not Resolved]
  - Abdominal pain upper [Not Recovered/Not Resolved]

NARRATIVE: CASE EVENT DATE: 20210604
